FAERS Safety Report 6252610-7 (Version None)
Quarter: 2009Q3

REPORT INFORMATION
  Report Type: 
  Country: None (occurrence: None)
  Receive Date: 20090701
  Receipt Date: 20090622
  Transmission Date: 20100115
  Serious: Yes (Death, Other)
  Sender: FDA-Public Use
  Company Number: GB-ROCHE-639468

PATIENT

DRUGS (6)
  1. MYCOPHENOLATE MOFETIL [Suspect]
     Dosage: +/- 15%
     Route: 048
  2. BLINDED BASILIXIMAB [Suspect]
     Dosage: DOSE BLINDED
     Route: 040
  3. CYCLOSPORINE [Suspect]
     Indication: RENAL TRANSPLANT
     Dosage: ADJUSTED TO MANTAIN TROUGH LEVELS
     Route: 065
  4. PREDNISOLONE [Suspect]
     Route: 065
  5. PREDNISOLONE [Suspect]
     Dosage: TAPERED FROM 60 MG/M2/DAY DURING WEEK 1 TO 6MG/M2 AT WEEK 6 AND MAINTAINED AT 4MG/M2 THEREAFTER.
     Route: 065
  6. METHYLPREDNISOLONE [Suspect]
     Dosage: TAPERED FROM 60 MG/M2/DAY DURING WEEK 1 TO 6MG/M2 AT WEEK 6 AND MAINTAINED AT 4MG/M2 THEREAFTER.
     Route: 065

REACTIONS (8)
  - BRAIN OEDEMA [None]
  - DEATH [None]
  - EPSTEIN-BARR VIRUS ASSOCIATED LYMPHOPROLIFERATIVE DISORDER [None]
  - INFECTION [None]
  - NEOPLASM MALIGNANT [None]
  - PNEUMOCYSTIS JIROVECI INFECTION [None]
  - PNEUMONIA [None]
  - TRANSPLANT REJECTION [None]
